FAERS Safety Report 13058185 (Version 2)
Quarter: 2017Q1

REPORT INFORMATION
  Report Type: Spontaneous
  Country: US (occurrence: US)
  Receive Date: 20161223
  Receipt Date: 20170208
  Transmission Date: 20170428
  Serious: No
  Sender: FDA-Public Use
  Company Number: ALCN2016US008848

PATIENT
  Age: 87 Year
  Sex: Female

DRUGS (1)
  1. ICAPS AREDS [Suspect]
     Active Substance: MINERALS\VITAMINS
     Indication: EYE DISORDER
     Dosage: 2 DF, QD
     Route: 065
     Dates: start: 201612, end: 201612

REACTIONS (2)
  - Wrong drug administered [Unknown]
  - Product commingling [Unknown]

NARRATIVE: CASE EVENT DATE: 201612
